FAERS Safety Report 8537345-X (Version None)
Quarter: 2012Q3

REPORT INFORMATION
  Report Type: 
  Country: None (occurrence: None)
  Receive Date: 20120725
  Receipt Date: 20120717
  Transmission Date: 20120928
  Serious: No
  Sender: FDA-Public Use
  Company Number: US-PURDUE-USA-2012-0088011

PATIENT
  Sex: Male
  Weight: 97.506 kg

DRUGS (1)
  1. OXYCONTIN [Suspect]
     Indication: PAIN
     Dosage: 320 MG, BID
     Route: 048

REACTIONS (3)
  - VOMITING [None]
  - TREMOR [None]
  - PAIN [None]
